FAERS Safety Report 17567007 (Version 4)
Quarter: 2020Q2

REPORT INFORMATION
  Report Type: Spontaneous
  Country: US (occurrence: US)
  Receive Date: 20200320
  Receipt Date: 20200625
  Transmission Date: 20200713
  Serious: Yes (Hospitalization, Other)
  Sender: FDA-Public Use
  Company Number: US-PFIZER INC-2020118755

PATIENT
  Age: 58 Year
  Sex: Female
  Weight: 97.1 kg

DRUGS (7)
  1. ZOSYN [Suspect]
     Active Substance: PIPERACILLIN SODIUM\TAZOBACTAM SODIUM
     Dosage: UNK
     Dates: start: 201101
  2. VITAMIN D [COLECALCIFEROL] [Concomitant]
     Active Substance: CHOLECALCIFEROL
     Dosage: UNK
  3. CALCIUM [Concomitant]
     Active Substance: CALCIUM
     Dosage: UNK
  4. VITAMIN C [Concomitant]
     Active Substance: ASCORBIC ACID
     Dosage: UNK
  5. VITAMIN E [Concomitant]
     Active Substance: .ALPHA.-TOCOPHEROL
     Dosage: UNK
  6. IMURAN [Suspect]
     Active Substance: AZATHIOPRINE
     Indication: COLITIS ULCERATIVE
     Dosage: UNK, 1X/DAY
     Route: 048
     Dates: start: 2008, end: 201101
  7. IMURAN [Suspect]
     Active Substance: AZATHIOPRINE
     Dosage: UNK, 1X/DAY
     Route: 048

REACTIONS (18)
  - Memory impairment [Recovered/Resolved]
  - White blood cell count decreased [Recovered/Resolved]
  - Bronchitis [Recovered/Resolved]
  - Sinus disorder [Unknown]
  - Liver function test abnormal [Recovered/Resolved]
  - Malaise [Recovered/Resolved]
  - Blood count abnormal [Unknown]
  - Gallbladder disorder [Recovered/Resolved]
  - Pyrexia [Recovered/Resolved]
  - Zinc deficiency [Recovered/Resolved]
  - Drug hypersensitivity [Unknown]
  - Cytomegalovirus infection [Recovered/Resolved]
  - Cytomegalovirus colitis [Not Recovered/Not Resolved]
  - Pancytopenia [Recovered/Resolved]
  - Proctitis ulcerative [Not Recovered/Not Resolved]
  - Folate deficiency [Recovered/Resolved]
  - Hepatic cyst [Recovered/Resolved]
  - Influenza [Recovered/Resolved]

NARRATIVE: CASE EVENT DATE: 2011
